FAERS Safety Report 15421112 (Version 2)
Quarter: 2018Q4

REPORT INFORMATION
  Report Type: Report from Study
  Country: US (occurrence: US)
  Receive Date: 20180924
  Receipt Date: 20181005
  Transmission Date: 20190204
  Serious: Yes (Hospitalization)
  Sender: FDA-Public Use
  Company Number: US-ACTELION-A-NJ2018-178952

PATIENT
  Age: 67 Year
  Sex: Female
  Weight: 80.73 kg

DRUGS (3)
  1. LETAIRIS [Concomitant]
     Active Substance: AMBRISENTAN
  2. VELETRI [Suspect]
     Active Substance: EPOPROSTENOL
     Indication: PULMONARY ARTERIAL HYPERTENSION
     Dosage: 4 NG/KG, PER MIN
     Route: 042
  3. OXYGEN. [Concomitant]
     Active Substance: OXYGEN
     Dosage: 5 L, UNK

REACTIONS (5)
  - Flushing [Unknown]
  - Fatigue [Unknown]
  - Hypoxia [Unknown]
  - Nausea [Unknown]
  - Oxygen saturation decreased [Unknown]

NARRATIVE: CASE EVENT DATE: 20180912
